FAERS Safety Report 20194667 (Version 3)
Quarter: 2022Q1

REPORT INFORMATION
  Report Type: Report from Study
  Country: GB (occurrence: GB)
  Receive Date: 20211216
  Receipt Date: 20220322
  Transmission Date: 20220423
  Serious: Yes (Hospitalization, Other)
  Sender: FDA-Public Use
  Company Number: GB-CHILTERN-GB-2020-001498

PATIENT
  Age: 48 Year
  Sex: Female
  Weight: 86 kg

DRUGS (18)
  1. TISOTUMAB VEDOTIN [Suspect]
     Active Substance: TISOTUMAB VEDOTIN
     Indication: Cervix cancer metastatic
     Dosage: 2.0 MILLIGRAM/KILOGRAM, 1Q3W
     Route: 041
     Dates: start: 20200203, end: 20200203
  2. PEMBROLIZUMAB [Suspect]
     Active Substance: PEMBROLIZUMAB
     Indication: Cervix cancer metastatic
     Dosage: 200 MILLIGRAM, 1Q3W
     Route: 041
     Dates: start: 20200203, end: 20200203
  3. ENOXAPARIN [Concomitant]
     Active Substance: ENOXAPARIN
     Indication: Prophylaxis
     Dosage: 120 MILLIGRAM, QD
     Route: 058
     Dates: start: 20180413
  4. FOLIC ACID [Concomitant]
     Active Substance: FOLIC ACID
     Indication: Prophylaxis
     Dosage: 5 MILLIGRAM, QD
     Route: 048
     Dates: start: 20180531
  5. MOMETASONE [Concomitant]
     Active Substance: MOMETASONE
     Indication: Prophylaxis
     Dosage: 200 MICROGRAM/DAY , BID
     Route: 045
     Dates: start: 20190116
  6. OMEPRAZOLE [Concomitant]
     Active Substance: OMEPRAZOLE
     Indication: Prophylaxis
     Dosage: 20 MILLIGRAM, QD
     Route: 048
     Dates: start: 20190610
  7. POLYETHYLENE GLYCOL 3350\POTASSIUM CHLORIDE\SODIUM BICARBONATE\SODIUM [Concomitant]
     Active Substance: POLYETHYLENE GLYCOL 3350\POTASSIUM CHLORIDE\SODIUM BICARBONATE\SODIUM CHLORIDE
     Indication: Prophylaxis
     Dosage: 1 SACHET, PRN
     Route: 048
     Dates: start: 20200127
  8. METOCLOPRAMIDE [Concomitant]
     Active Substance: METOCLOPRAMIDE
     Indication: Prophylaxis
     Dosage: 10 MILLIGRAM, TID
     Route: 048
     Dates: start: 20200127
  9. METOCLOPRAMIDE [Concomitant]
     Active Substance: METOCLOPRAMIDE
     Indication: Intestinal obstruction
     Dosage: 50 MILLIGRAM, 24 HOURS
     Dates: start: 20200216, end: 20200302
  10. FLUTICASONE [Concomitant]
     Active Substance: FLUTICASONE
     Indication: Prophylaxis
     Dosage: 200 MILLIGRAM, BID
     Route: 045
     Dates: start: 20200109
  11. CARBOXYMETHYLCELLULOSE [Concomitant]
     Active Substance: CARBOXYMETHYLCELLULOSE
     Indication: Prophylaxis
     Dosage: EYE DROPS, 1 DROP, BID
     Route: 047
     Dates: start: 20200203
  12. AMOXICILLIN\CLAVULANATE POTASSIUM [Concomitant]
     Active Substance: AMOXICILLIN\CLAVULANATE POTASSIUM
     Indication: Urinary tract infection
     Dosage: 625 MILLIGRAM (500/125), TID
     Route: 048
     Dates: start: 20200206, end: 20200212
  13. PIPERACILLIN SODIUM\TAZOBACTAM SODIUM [Concomitant]
     Active Substance: PIPERACILLIN SODIUM\TAZOBACTAM SODIUM
     Indication: Neutropenia
     Dosage: 4.5 GRAM, QID
     Route: 042
     Dates: start: 20200212, end: 20200216
  14. LEVOMEPROMAZINE [Concomitant]
     Active Substance: LEVOMEPROMAZINE
     Indication: Intestinal obstruction
     Dosage: 10 MILLIGRAM, QD
     Route: 058
     Dates: start: 20200216, end: 20200226
  15. DOCUSATE [Concomitant]
     Active Substance: DOCUSATE
     Indication: Intestinal obstruction
     Dosage: 100 MILLIGRAM, BID
     Route: 048
     Dates: start: 20200216
  16. DEXAMETHASONE [Concomitant]
     Active Substance: DEXAMETHASONE
     Indication: Intestinal obstruction
     Dosage: 4 MILLIGRAM, QD
     Route: 048
     Dates: start: 20200220, end: 20200228
  17. DEXAMETHASONE [Concomitant]
     Active Substance: DEXAMETHASONE
     Indication: Intestinal obstruction
     Dosage: 2 MILLIGRAM, QD
     Route: 048
     Dates: start: 20200225
  18. DEXAMETHASONE [Concomitant]
     Active Substance: DEXAMETHASONE
     Indication: Prophylaxis
     Dosage: 1 DROP, TID, BOTH EYES
     Route: 047
     Dates: start: 20200203, end: 20200205

REACTIONS (4)
  - Anaemia [Recovered/Resolved]
  - Acute kidney injury [Recovered/Resolved]
  - Urinary retention [Recovered/Resolved]
  - Urinary tract infection [Recovered/Resolved]

NARRATIVE: CASE EVENT DATE: 20200304
